FAERS Safety Report 15799959 (Version 2)
Quarter: 2019Q1

REPORT INFORMATION
  Report Type: Spontaneous
  Country: US (occurrence: US)
  Receive Date: 20190108
  Receipt Date: 20190201
  Transmission Date: 20190417
  Serious: No
  Sender: FDA-Public Use
  Company Number: US-ASTRAZENECA-2018SF67136

PATIENT
  Age: 25671 Day
  Sex: Male
  Weight: 117.9 kg

DRUGS (5)
  1. BYDUREON [Suspect]
     Active Substance: EXENATIDE
     Indication: TYPE 2 DIABETES MELLITUS
     Dosage: BYDUREON SINGLE DOSE TRAY, 2 MG , ONCE A WEEK
     Route: 058
     Dates: start: 2016
  2. BYDUREON [Suspect]
     Active Substance: EXENATIDE
     Indication: TYPE 2 DIABETES MELLITUS
     Dosage: BYDUREON PEN, 2 MG , ONCE A WEEK
     Route: 058
  3. INVOKANA [Concomitant]
     Active Substance: CANAGLIFLOZIN
  4. BYDUREON BCISE [Suspect]
     Active Substance: EXENATIDE
     Indication: TYPE 2 DIABETES MELLITUS
     Route: 058
  5. INSULIN [Concomitant]
     Active Substance: INSULIN NOS

REACTIONS (4)
  - Overweight [Unknown]
  - Product dose omission [Unknown]
  - Product use issue [Unknown]
  - Needle issue [Unknown]
